FAERS Safety Report 26082628 (Version 1)
Quarter: 2025Q4

REPORT INFORMATION
  Report Type: Spontaneous
  Country: IN (occurrence: IN)
  Receive Date: 20251124
  Receipt Date: 20251124
  Transmission Date: 20260117
  Serious: Yes (Hospitalization)
  Sender: MYLAN
  Company Number: IN-MYLANLABS-2025M1098956

PATIENT
  Age: 21 Year
  Sex: Male

DRUGS (64)
  1. METHOTREXATE [Suspect]
     Active Substance: METHOTREXATE
     Indication: Prophylaxis against graft versus host disease
     Dosage: UNK
  2. METHOTREXATE [Suspect]
     Active Substance: METHOTREXATE
     Dosage: UNK
     Route: 065
  3. METHOTREXATE [Suspect]
     Active Substance: METHOTREXATE
     Dosage: UNK
     Route: 065
  4. METHOTREXATE [Suspect]
     Active Substance: METHOTREXATE
     Dosage: UNK
  5. FLUDARABINE [Suspect]
     Active Substance: FLUDARABINE PHOSPHATE
     Indication: Bone marrow conditioning regimen
     Dosage: 30 MILLIGRAM/SQ. METER, QD
  6. FLUDARABINE [Suspect]
     Active Substance: FLUDARABINE PHOSPHATE
     Dosage: 30 MILLIGRAM/SQ. METER, QD
     Route: 065
  7. FLUDARABINE [Suspect]
     Active Substance: FLUDARABINE PHOSPHATE
     Dosage: 30 MILLIGRAM/SQ. METER, QD
     Route: 065
  8. FLUDARABINE [Suspect]
     Active Substance: FLUDARABINE PHOSPHATE
     Dosage: 30 MILLIGRAM/SQ. METER, QD
  9. AMPHOTERICIN B [Suspect]
     Active Substance: AMPHOTERICIN B
     Indication: Endophthalmitis
     Dosage: 5 MICROGRAM, EVERY 3 DAYS ALTERNATING WITH 5 ?G/0.1 ML
  10. AMPHOTERICIN B [Suspect]
     Active Substance: AMPHOTERICIN B
     Indication: Fusarium infection
     Dosage: 5 MICROGRAM, EVERY 3 DAYS ALTERNATING WITH 5 ?G/0.1 ML
  11. AMPHOTERICIN B [Suspect]
     Active Substance: AMPHOTERICIN B
     Dosage: 5 MICROGRAM, EVERY 3 DAYS ALTERNATING WITH 5 ?G/0.1 ML
  12. AMPHOTERICIN B [Suspect]
     Active Substance: AMPHOTERICIN B
     Dosage: 5 MICROGRAM, EVERY 3 DAYS ALTERNATING WITH 5 ?G/0.1 ML
  13. POSACONAZOLE [Suspect]
     Active Substance: POSACONAZOLE
     Indication: Antifungal prophylaxis
     Dosage: UNK
  14. POSACONAZOLE [Suspect]
     Active Substance: POSACONAZOLE
     Dosage: UNK
     Route: 048
  15. POSACONAZOLE [Suspect]
     Active Substance: POSACONAZOLE
     Dosage: UNK
     Route: 048
  16. POSACONAZOLE [Suspect]
     Active Substance: POSACONAZOLE
     Dosage: UNK
  17. VORICONAZOLE [Suspect]
     Active Substance: VORICONAZOLE
     Indication: Antifungal prophylaxis
     Dosage: 100 MICROGRAM, 100 ?G/0.1 ML
  18. VORICONAZOLE [Suspect]
     Active Substance: VORICONAZOLE
     Dosage: 100 MICROGRAM, 100 ?G/0.1 ML
     Route: 065
  19. VORICONAZOLE [Suspect]
     Active Substance: VORICONAZOLE
     Dosage: 100 MICROGRAM, 100 ?G/0.1 ML
     Route: 065
  20. VORICONAZOLE [Suspect]
     Active Substance: VORICONAZOLE
     Dosage: 100 MICROGRAM, 100 ?G/0.1 ML
  21. VORICONAZOLE [Suspect]
     Active Substance: VORICONAZOLE
     Indication: Endophthalmitis
     Dosage: UNK
  22. VORICONAZOLE [Suspect]
     Active Substance: VORICONAZOLE
     Indication: Fusarium infection
     Dosage: UNK
     Route: 061
  23. VORICONAZOLE [Suspect]
     Active Substance: VORICONAZOLE
     Dosage: UNK
     Route: 061
  24. VORICONAZOLE [Suspect]
     Active Substance: VORICONAZOLE
     Dosage: UNK
  25. VORICONAZOLE [Suspect]
     Active Substance: VORICONAZOLE
     Indication: Endophthalmitis
     Dosage: 200 MILLIGRAM, BID
  26. VORICONAZOLE [Suspect]
     Active Substance: VORICONAZOLE
     Indication: Fusarium infection
     Dosage: 200 MILLIGRAM, BID
     Route: 048
  27. VORICONAZOLE [Suspect]
     Active Substance: VORICONAZOLE
     Dosage: 200 MILLIGRAM, BID
     Route: 048
  28. VORICONAZOLE [Suspect]
     Active Substance: VORICONAZOLE
     Dosage: 200 MILLIGRAM, BID
  29. VORICONAZOLE [Suspect]
     Active Substance: VORICONAZOLE
     Indication: Endophthalmitis
     Dosage: 100 MICROGRAM, 100 ?G/0.1 ML
  30. VORICONAZOLE [Suspect]
     Active Substance: VORICONAZOLE
     Indication: Fusarium infection
     Dosage: 100 MICROGRAM, 100 ?G/0.1 ML
  31. VORICONAZOLE [Suspect]
     Active Substance: VORICONAZOLE
     Dosage: 100 MICROGRAM, 100 ?G/0.1 ML
  32. VORICONAZOLE [Suspect]
     Active Substance: VORICONAZOLE
     Dosage: 100 MICROGRAM, 100 ?G/0.1 ML
  33. CYCLOPHOSPHAMIDE [Suspect]
     Active Substance: CYCLOPHOSPHAMIDE
     Indication: Bone marrow conditioning regimen
     Dosage: 60 MILLIGRAM/KILOGRAM, QD
  34. CYCLOPHOSPHAMIDE [Suspect]
     Active Substance: CYCLOPHOSPHAMIDE
     Dosage: 60 MILLIGRAM/KILOGRAM, QD
     Route: 065
  35. CYCLOPHOSPHAMIDE [Suspect]
     Active Substance: CYCLOPHOSPHAMIDE
     Dosage: 60 MILLIGRAM/KILOGRAM, QD
     Route: 065
  36. CYCLOPHOSPHAMIDE [Suspect]
     Active Substance: CYCLOPHOSPHAMIDE
     Dosage: 60 MILLIGRAM/KILOGRAM, QD
  37. THYMOCYTE IMMUNE GLOBULIN NOS [Suspect]
     Active Substance: THYMOCYTE IMMUNE GLOBULIN NOS
     Indication: Bone marrow conditioning regimen
     Dosage: 3 MICROGRAM/KILOGRAM, QD
  38. THYMOCYTE IMMUNE GLOBULIN NOS [Suspect]
     Active Substance: THYMOCYTE IMMUNE GLOBULIN NOS
     Dosage: 3 MICROGRAM/KILOGRAM, QD
     Route: 065
  39. THYMOCYTE IMMUNE GLOBULIN NOS [Suspect]
     Active Substance: THYMOCYTE IMMUNE GLOBULIN NOS
     Dosage: 3 MICROGRAM/KILOGRAM, QD
     Route: 065
  40. THYMOCYTE IMMUNE GLOBULIN NOS [Suspect]
     Active Substance: THYMOCYTE IMMUNE GLOBULIN NOS
     Dosage: 3 MICROGRAM/KILOGRAM, QD
  41. CYCLOSPORINE [Suspect]
     Active Substance: CYCLOSPORINE
     Indication: Prophylaxis against graft versus host disease
     Dosage: UNK
  42. CYCLOSPORINE [Suspect]
     Active Substance: CYCLOSPORINE
     Dosage: UNK
     Route: 065
  43. CYCLOSPORINE [Suspect]
     Active Substance: CYCLOSPORINE
     Dosage: UNK
     Route: 065
  44. CYCLOSPORINE [Suspect]
     Active Substance: CYCLOSPORINE
     Dosage: UNK
  45. NATAMYCIN [Suspect]
     Active Substance: NATAMYCIN
     Indication: Endophthalmitis
     Dosage: UNK
  46. NATAMYCIN [Suspect]
     Active Substance: NATAMYCIN
     Indication: Fusarium infection
     Dosage: UNK
     Route: 061
  47. NATAMYCIN [Suspect]
     Active Substance: NATAMYCIN
     Dosage: UNK
     Route: 061
  48. NATAMYCIN [Suspect]
     Active Substance: NATAMYCIN
     Dosage: UNK
  49. VALACYCLOVIR [Concomitant]
     Active Substance: VALACYCLOVIR HYDROCHLORIDE
     Indication: Antiviral prophylaxis
     Dosage: UNK
  50. VALACYCLOVIR [Concomitant]
     Active Substance: VALACYCLOVIR HYDROCHLORIDE
     Dosage: UNK
     Route: 048
  51. VALACYCLOVIR [Concomitant]
     Active Substance: VALACYCLOVIR HYDROCHLORIDE
     Dosage: UNK
     Route: 048
  52. VALACYCLOVIR [Concomitant]
     Active Substance: VALACYCLOVIR HYDROCHLORIDE
     Dosage: UNK
  53. GANCICLOVIR [Concomitant]
     Active Substance: GANCICLOVIR
     Indication: Evidence based treatment
     Dosage: 4 MILLIGRAM, 4 MG/0.1 ML
  54. GANCICLOVIR [Concomitant]
     Active Substance: GANCICLOVIR
     Dosage: 4 MILLIGRAM, 4 MG/0.1 ML
  55. GANCICLOVIR [Concomitant]
     Active Substance: GANCICLOVIR
     Dosage: 4 MILLIGRAM, 4 MG/0.1 ML
  56. GANCICLOVIR [Concomitant]
     Active Substance: GANCICLOVIR
     Dosage: 4 MILLIGRAM, 4 MG/0.1 ML
  57. VANCOMYCIN [Concomitant]
     Active Substance: VANCOMYCIN
     Indication: Evidence based treatment
     Dosage: 1 MILLIGRAM, 1 MG/0.1 ML
  58. VANCOMYCIN [Concomitant]
     Active Substance: VANCOMYCIN
     Dosage: 1 MILLIGRAM, 1 MG/0.1 ML
  59. VANCOMYCIN [Concomitant]
     Active Substance: VANCOMYCIN
     Dosage: 1 MILLIGRAM, 1 MG/0.1 ML
  60. VANCOMYCIN [Concomitant]
     Active Substance: VANCOMYCIN
     Dosage: 1 MILLIGRAM, 1 MG/0.1 ML
  61. CEFTAZIDIME [Concomitant]
     Active Substance: CEFTAZIDIME
     Indication: Evidence based treatment
     Dosage: 2.25 MILLIGRAM, 2.25 MG/0.1 ML
  62. CEFTAZIDIME [Concomitant]
     Active Substance: CEFTAZIDIME
     Dosage: 2.25 MILLIGRAM, 2.25 MG/0.1 ML
  63. CEFTAZIDIME [Concomitant]
     Active Substance: CEFTAZIDIME
     Dosage: 2.25 MILLIGRAM, 2.25 MG/0.1 ML
  64. CEFTAZIDIME [Concomitant]
     Active Substance: CEFTAZIDIME
     Dosage: 2.25 MILLIGRAM, 2.25 MG/0.1 ML

REACTIONS (5)
  - Endophthalmitis [Recovering/Resolving]
  - Fusarium infection [Recovering/Resolving]
  - Hypopyon [Recovering/Resolving]
  - Retinal detachment [Recovering/Resolving]
  - Drug ineffective [Unknown]
